FAERS Safety Report 7313164-7 (Version None)
Quarter: 2011Q1

REPORT INFORMATION
  Report Type: 
  Country: None (occurrence: None)
  Receive Date: 20110225
  Receipt Date: 20110214
  Transmission Date: 20110831
  Serious: Yes (Other)
  Sender: FDA-Public Use
  Company Number: DE-AMGEN-DEUSP2011006998

PATIENT
  Age: 50 Year
  Sex: Male

DRUGS (1)
  1. ENBREL [Suspect]
     Dosage: 50 MG, WEEKLY
     Dates: start: 20100401, end: 20110201

REACTIONS (3)
  - HEADACHE [None]
  - HYPERTENSION [None]
  - DIABETES MELLITUS [None]
